FAERS Safety Report 6944689-1 (Version None)
Quarter: 2010Q3

REPORT INFORMATION
  Report Type: 
  Country: None (occurrence: None)
  Receive Date: 20100827
  Receipt Date: 20100810
  Transmission Date: 20110219
  Serious: Yes (Hospitalization)
  Sender: FDA-Public Use
  Company Number: AT-BAYER-200710371GDS

PATIENT
  Age: 71 Year
  Sex: Male
  Weight: 73 kg

DRUGS (3)
  1. NEXAVAR [Suspect]
     Indication: RENAL CELL CARCINOMA
     Dosage: TOTAL DAILY DOSE: 800 MG
     Route: 048
     Dates: start: 20061229, end: 20070115
  2. NEXAVAR [Suspect]
     Route: 048
     Dates: start: 20070212, end: 20070215
  3. NEXAVAR [Suspect]
     Route: 048
     Dates: end: 20070212

REACTIONS (7)
  - COUGH [None]
  - DIARRHOEA [None]
  - DYSPNOEA [None]
  - PALMAR-PLANTAR ERYTHRODYSAESTHESIA SYNDROME [None]
  - PERFORMANCE STATUS DECREASED [None]
  - PYREXIA [None]
  - RASH [None]
